FAERS Safety Report 10027364 (Version 1)
Quarter: 2014Q1

REPORT INFORMATION
  Report Type: Spontaneous
  Country: US (occurrence: US)
  Receive Date: 20140321
  Receipt Date: 20140321
  Transmission Date: 20141002
  Serious: Yes (Hospitalization)
  Sender: FDA-Public Use
  Company Number: US-PERRIGO-14US002606

PATIENT
  Sex: 0

DRUGS (1)
  1. IBUPROFEN 20 MG/ML CHILD FRUIT 623 [Suspect]
     Indication: PRODUCT USED FOR UNKNOWN INDICATION
     Dosage: UNKNOWN, UNKNOWN
     Route: 048
     Dates: start: 2011

REACTIONS (1)
  - Anaphylactic reaction [Recovered/Resolved]
